FAERS Safety Report 21076799 (Version 1)
Quarter: 2022Q3

REPORT INFORMATION
  Report Type: Report from Study
  Country: AT (occurrence: AT)
  Receive Date: 20220713
  Receipt Date: 20220713
  Transmission Date: 20221027
  Serious: Yes (Other)
  Sender: FDA-Public Use
  Company Number: AT-TAKEDA-2022TUS023328

PATIENT
  Age: 61 Year
  Sex: Female

DRUGS (5)
  1. VEDOLIZUMAB [Suspect]
     Active Substance: VEDOLIZUMAB
     Indication: Crohn^s disease
     Dosage: 108 MILLIGRAM, Q2WEEKS
     Route: 058
     Dates: start: 20210531
  2. VEDOLIZUMAB [Suspect]
     Active Substance: VEDOLIZUMAB
     Indication: Crohn^s disease
     Dosage: 300 MILLIGRAM
     Route: 042
     Dates: start: 201906
  3. DIABETEX [Concomitant]
     Dosage: 1000 MILLIGRAM
     Route: 048
  4. CELECOXIB [Concomitant]
     Active Substance: CELECOXIB
     Indication: Arthritis
     Dosage: 200 MILLIGRAM
  5. METAMIZOLE [Concomitant]
     Active Substance: METAMIZOLE
     Indication: Pain
     Dosage: 500 MILLIGRAM
     Route: 048

REACTIONS (2)
  - Crohn^s disease [Recovered/Resolved]
  - Influenza like illness [Unknown]

NARRATIVE: CASE EVENT DATE: 20210531
